APPROVED DRUG PRODUCT: NAROPIN
Active Ingredient: ROPIVACAINE HYDROCHLORIDE
Strength: 100MG/20ML (5MG/ML)
Dosage Form/Route: SOLUTION;INJECTION
Application: N020533 | Product #003 | TE Code: AP
Applicant: FRESENIUS KABI USA LLC
Approved: May 1, 1998 | RLD: Yes | RS: No | Type: RX